FAERS Safety Report 7214489-6 (Version None)
Quarter: 2011Q1

REPORT INFORMATION
  Report Type: 
  Country: None (occurrence: None)
  Receive Date: 20110107
  Receipt Date: 20110104
  Transmission Date: 20110831
  Serious: Yes (Life-Threatening, Hospitalization, Disabling)
  Sender: FDA-Public Use
  Company Number: CA-NOVOPROD-321092

PATIENT
  Age: 48 Year
  Sex: Female
  Weight: 116.6 kg

DRUGS (6)
  1. LASIX [Concomitant]
  2. NOVORAPID FLEXPEN [Suspect]
     Indication: PRODUCT USED FOR UNKNOWN INDICATION
     Dosage: 0.25 UNITS EVERY 1 HOUR
     Route: 058
  3. FIORINAL                           /00090401/ [Concomitant]
  4. GRAVOL TAB [Concomitant]
  5. SERAX                              /00040901/ [Concomitant]
     Dosage: ORAL
     Route: 048
  6. HUMULIN                            /00646001/ [Concomitant]
     Dosage: 0.25 U 1 EVERY 1 HOUR
     Route: 058

REACTIONS (19)
  - HAEMORRHAGE [None]
  - DIZZINESS [None]
  - EPISTAXIS [None]
  - NAUSEA [None]
  - PRURITUS [None]
  - HYPOVENTILATION [None]
  - APHAGIA [None]
  - DIARRHOEA [None]
  - SKIN LESION [None]
  - RASH ERYTHEMATOUS [None]
  - HYPERSENSITIVITY [None]
  - DYSPNOEA [None]
  - EAR PAIN [None]
  - PAIN [None]
  - FLUID RETENTION [None]
  - PYREXIA [None]
  - COUGH [None]
  - HYPERTENSION [None]
  - RHINORRHOEA [None]
